FAERS Safety Report 8877999 (Version 1)
Quarter: 2012Q4

REPORT INFORMATION
  Report Type: 
  Country: GB (occurrence: GB)
  Receive Date: 20121030
  Receipt Date: 20121030
  Transmission Date: 20130627
  Serious: Yes (Hospitalization, Other)
  Sender: FDA-Public Use
  Company Number: GB-FRI-1000039713

PATIENT
  Age: 43 Year
  Sex: Female

DRUGS (5)
  1. DILTIAZEM [Suspect]
     Dosage: 3360 mg
  2. CITALOPRAM [Suspect]
     Dosage: 560 mg
  3. GABAPENTIN [Suspect]
     Dosage: 1800 mg
  4. DIAZEPAM [Suspect]
     Dosage: 115 mg
  5. IRBESARTAN [Suspect]
     Dosage: 1800 mg

REACTIONS (7)
  - Intentional overdose [Recovered/Resolved]
  - Hypotension [Recovered/Resolved]
  - Atrioventricular block complete [Recovered/Resolved]
  - Pulmonary oedema [Unknown]
  - Hypoxia [Unknown]
  - Renal impairment [Recovered/Resolved]
  - Left ventricular dysfunction [Recovered/Resolved]
